FAERS Safety Report 9122079 (Version 1)
Quarter: 2013Q1

REPORT INFORMATION
  Report Type: Spontaneous
  Country: US (occurrence: US)
  Receive Date: 20130114
  Receipt Date: 20130114
  Transmission Date: 20140127
  Serious: Yes (Other)
  Sender: FDA-Public Use
  Company Number: US-JNJFOC-20130103908

PATIENT
  Age: 0 Year
  Sex: Male

DRUGS (1)
  1. ORTHO EVRA [Suspect]
     Indication: FOETAL EXPOSURE DURING PREGNANCY
     Route: 064

REACTIONS (2)
  - Feeling cold [Recovered/Resolved]
  - Cyanosis neonatal [Recovered/Resolved]
